FAERS Safety Report 18285423 (Version 1)
Quarter: 2020Q3

REPORT INFORMATION
  Report Type: Spontaneous
  Country: CN (occurrence: CN)
  Receive Date: 20200918
  Receipt Date: 20200918
  Transmission Date: 20201103
  Serious: Yes (Other)
  Sender: FDA-Public Use
  Company Number: CN-ASTRAZENECA-2020SF19220

PATIENT
  Age: 31344 Day
  Sex: Male
  Weight: 60 kg

DRUGS (2)
  1. BRILINTA [Suspect]
     Active Substance: TICAGRELOR
     Indication: POSTOPERATIVE CARE
     Route: 048
     Dates: start: 20200806
  2. ASPIRIN. [Suspect]
     Active Substance: ASPIRIN
     Indication: ANTIPLATELET THERAPY
     Route: 048
     Dates: start: 20200728, end: 20200806

REACTIONS (3)
  - Gastrointestinal haemorrhage [Recovering/Resolving]
  - Abdominal pain [Recovering/Resolving]
  - Pruritus [Unknown]

NARRATIVE: CASE EVENT DATE: 20200806
